FAERS Safety Report 25192687 (Version 3)
Quarter: 2025Q2

REPORT INFORMATION
  Report Type: Report from Study
  Country: BE (occurrence: BE)
  Receive Date: 20250414
  Receipt Date: 20250512
  Transmission Date: 20250717
  Serious: Yes (Death, Hospitalization, Other)
  Sender: CSL BEHRING
  Company Number: BE-BEH-2025193304

PATIENT
  Age: 66 Year
  Sex: Male
  Weight: 96 kg

DRUGS (7)
  1. HIZENTRA [Suspect]
     Active Substance: HUMAN IMMUNOGLOBULIN G
     Indication: Primary immunodeficiency syndrome
     Dosage: 4 G (20 ML), QW
     Route: 058
     Dates: start: 20240206
  2. HIZENTRA [Suspect]
     Active Substance: HUMAN IMMUNOGLOBULIN G
     Dosage: 4 G (20 ML), QW
     Route: 058
     Dates: start: 20240206
  3. HIZENTRA [Suspect]
     Active Substance: HUMAN IMMUNOGLOBULIN G
     Dosage: 4 G (20 ML), QW
     Route: 058
     Dates: start: 20240206
  4. HIZENTRA [Suspect]
     Active Substance: HUMAN IMMUNOGLOBULIN G
     Dosage: 4 G (20 ML), QW
     Route: 058
     Dates: start: 20240206
  5. HIZENTRA [Suspect]
     Active Substance: HUMAN IMMUNOGLOBULIN G
     Dosage: 4 G (20 ML), QW
     Route: 058
     Dates: start: 20240206
  6. HIZENTRA [Suspect]
     Active Substance: HUMAN IMMUNOGLOBULIN G
     Dosage: 4 G (20 ML), QW
     Route: 058
     Dates: start: 20240206
  7. HIZENTRA [Suspect]
     Active Substance: HUMAN IMMUNOGLOBULIN G
     Dosage: 16 G, QW
     Route: 058

REACTIONS (2)
  - Death [Fatal]
  - Adverse event [Unknown]

NARRATIVE: CASE EVENT DATE: 20250107
